FAERS Safety Report 16078800 (Version 1)
Quarter: 2019Q1

REPORT INFORMATION
  Report Type: Spontaneous
  Country: US (occurrence: US)
  Receive Date: 20190315
  Receipt Date: 20190315
  Transmission Date: 20190418
  Serious: No
  Sender: FDA-Public Use
  Company Number: US-PERRIGO-18US005510

PATIENT
  Age: 17 Year
  Sex: Female
  Weight: 52.15 kg

DRUGS (7)
  1. CARBIDOPA. [Concomitant]
     Active Substance: CARBIDOPA
     Indication: CEREBRAL PALSY
     Dosage: UNK
     Route: 065
     Dates: start: 2004
  2. SCOPOLAMINE [Suspect]
     Active Substance: SCOPOLAMINE
     Indication: DROOLING
     Dosage: 1 MG, Q72H
     Route: 062
     Dates: start: 20180512
  3. BANZEL [Concomitant]
     Active Substance: RUFINAMIDE
     Indication: CEREBRAL PALSY
     Dosage: 200 MG
     Route: 065
     Dates: start: 2004
  4. CARBIDOPA AND LEVODOPA [Concomitant]
     Active Substance: CARBIDOPA\LEVODOPA
     Indication: CEREBRAL PALSY
     Dosage: UNK
     Route: 065
     Dates: start: 2004
  5. MAGNESIUM CITRATE                  /01486801/ [Concomitant]
     Active Substance: MAGNESIUM CITRATE
     Indication: BOWEL MOVEMENT IRREGULARITY
     Dosage: 100 MG, QD
     Route: 065
     Dates: start: 2013
  6. ONFI [Concomitant]
     Active Substance: CLOBAZAM
     Indication: CEREBRAL PALSY
     Dosage: 20 MG, BID (1.5 TABLETS)
     Route: 065
     Dates: start: 2004
  7. CLONAZEPAM. [Concomitant]
     Active Substance: CLONAZEPAM
     Indication: HYPEREXPLEXIA
     Dosage: UNK
     Route: 065
     Dates: start: 2016

REACTIONS (2)
  - Off label use [Unknown]
  - Therapeutic response unexpected [Unknown]

NARRATIVE: CASE EVENT DATE: 20180513
